FAERS Safety Report 6438373-0 (Version None)
Quarter: 2009Q4

REPORT INFORMATION
  Report Type: 
  Country: None (occurrence: None)
  Receive Date: 20091112
  Receipt Date: 20091029
  Transmission Date: 20100525
  Serious: Yes (Hospitalization)
  Sender: FDA-Public Use
  Company Number: DE-MYLANLABS-2009S1019152

PATIENT
  Age: 84 Year
  Sex: Female
  Weight: 70.9 kg

DRUGS (9)
  1. NITRO-SPRAY [Suspect]
     Indication: HYPERTENSION
     Route: 002
     Dates: end: 20080612
  2. LISINOPRIL [Suspect]
     Indication: HYPERTENSION
     Dosage: 1/0/1/2 TBL. TGL., D.H. PRO D 15 MG LISINOPRIL UND 18,75 MG HYDROCHLOROTHIAZID
     Route: 048
     Dates: end: 20080617
  3. METOPROLOL [Suspect]
     Indication: HYPERTENSION
     Dosage: 1-0-1/2 TBL. TGL.
     Route: 048
  4. AMLODIPINE [Suspect]
     Indication: HYPERTENSION
     Route: 048
  5. MOXONIDINE [Suspect]
     Indication: HYPERTENSION
     Route: 048
  6. PANTOPRAZOLE SODIUM [Concomitant]
     Indication: GASTRITIS PROPHYLAXIS
     Route: 048
  7. ASPIRIN [Concomitant]
     Indication: THROMBOSIS PROPHYLAXIS
     Route: 048
     Dates: start: 20010101
  8. SIMAVASTATIN [Concomitant]
     Indication: CARDIOVASCULAR EVENT PROPHYLAXIS
     Route: 048
  9. KEPPRA [Concomitant]
     Indication: INFARCTION
     Route: 048

REACTIONS (1)
  - SYNCOPE [None]
